FAERS Safety Report 25340476 (Version 1)
Quarter: 2025Q2

REPORT INFORMATION
  Report Type: Spontaneous
  Country: US (occurrence: US)
  Receive Date: 20250521
  Receipt Date: 20250521
  Transmission Date: 20250716
  Serious: Yes (Other)
  Sender: NOVO NORDISK
  Company Number: US-NOVOPROD-1430389

PATIENT
  Age: 54 Year
  Sex: Female

DRUGS (1)
  1. OZEMPIC [Suspect]
     Active Substance: SEMAGLUTIDE
     Indication: Type 2 diabetes mellitus
     Dosage: 0.5 MG, QW
     Dates: start: 202406

REACTIONS (3)
  - Hysterectomy [Unknown]
  - Haemorrhage [Unknown]
  - Constipation [Unknown]

NARRATIVE: CASE EVENT DATE: 20250301
